FAERS Safety Report 5722884-7 (Version None)
Quarter: 2008Q2

REPORT INFORMATION
  Report Type: 
  Country: None (occurrence: None)
  Receive Date: 20080425
  Receipt Date: 20080414
  Transmission Date: 20081010
  Serious: Yes (Hospitalization, Other)
  Sender: FDA-Public Use
  Company Number: 2008S1003120

PATIENT
  Age: 66 Year
  Sex: Male
  Weight: 72.5755 kg

DRUGS (11)
  1. FENTANYL TRANSDERMAL SYSTEM [Suspect]
     Indication: BACK PAIN
     Dosage: 12 UG;EVERY HOUR; TRANSDERMAL
     Route: 062
     Dates: start: 20071126, end: 20080207
  2. PLAVIX [Concomitant]
  3. ACIPHEX [Concomitant]
  4. FLUOXETINE [Concomitant]
  5. TEKTURNA [Concomitant]
  6. AMLODIPINE [Concomitant]
  7. VYTORIN [Concomitant]
  8. FLOMAX [Concomitant]
  9. ACEON [Concomitant]
  10. NITROGLYCERIN [Concomitant]
  11. MECLIZINE [Concomitant]

REACTIONS (11)
  - COLLAPSE OF LUNG [None]
  - DISTURBANCE IN ATTENTION [None]
  - DIZZINESS [None]
  - DYSPNOEA [None]
  - FALL [None]
  - MENTAL IMPAIRMENT [None]
  - MOOD SWINGS [None]
  - OVERDOSE [None]
  - PRURITUS GENERALISED [None]
  - RESPIRATORY RATE INCREASED [None]
  - SCREAMING [None]
